FAERS Safety Report 17664957 (Version 1)
Quarter: 2020Q2

REPORT INFORMATION
  Report Type: Spontaneous
  Country: US (occurrence: US)
  Receive Date: 20200413
  Receipt Date: 20200413
  Transmission Date: 20200713
  Serious: Yes (Disabling, Other)
  Sender: FDA-Public Use
  Company Number: None

PATIENT
  Age: 44 Year
  Sex: Female
  Weight: 95.85 kg

DRUGS (12)
  1. FENTANYL TRANSDERMAL SYSTEM [Suspect]
     Active Substance: FENTANYL
     Indication: POST LAMINECTOMY SYNDROME
     Dosage: ?          QUANTITY:5 PATCH(ES);OTHER FREQUENCY:EVERY 72 HOURS;?
     Route: 062
  2. WIXELA INHUB [Concomitant]
     Active Substance: FLUTICASONE PROPIONATE\SALMETEROL XINAFOATE
  3. IBUPROFEN. [Concomitant]
     Active Substance: IBUPROFEN
  4. FENOFIBRATE. [Concomitant]
     Active Substance: FENOFIBRATE
  5. VERAPAMIL [Concomitant]
     Active Substance: VERAPAMIL HYDROCHLORIDE
  6. BUSPIRONE [Concomitant]
     Active Substance: BUSPIRONE HYDROCHLORIDE
  7. LYRICA [Concomitant]
     Active Substance: PREGABALIN
  8. DULOXETINE. [Concomitant]
     Active Substance: DULOXETINE
  9. MONTELUKAST [Concomitant]
     Active Substance: MONTELUKAST SODIUM
  10. POTASSIUM CITRATE ER [Concomitant]
     Active Substance: POTASSIUM CITRATE
  11. ONE A DAY WOMENS VITAMINS [Concomitant]
  12. PRAVASTATIN. [Concomitant]
     Active Substance: PRAVASTATIN

REACTIONS (6)
  - Diarrhoea [None]
  - Limb discomfort [None]
  - Insomnia [None]
  - Withdrawal syndrome [None]
  - Malaise [None]
  - Nausea [None]

NARRATIVE: CASE EVENT DATE: 20200407
